FAERS Safety Report 5807913-4 (Version None)
Quarter: 2008Q3

REPORT INFORMATION
  Report Type: 
  Country: None (occurrence: None)
  Receive Date: 20080711
  Receipt Date: 20080701
  Transmission Date: 20090109
  Serious: Yes (Disabling, Other)
  Sender: FDA-Public Use
  Company Number: AU-PFIZER INC-2008052318

PATIENT
  Sex: Female
  Weight: 78 kg

DRUGS (21)
  1. LINEZOLID [Suspect]
     Route: 042
     Dates: start: 20080609, end: 20080614
  2. IDARUBICIN HCL [Suspect]
     Indication: ACUTE MYELOID LEUKAEMIA
     Dosage: DAILY DOSE:17MG-FREQ:DAILY
     Route: 042
  3. ETOPOSIDE [Suspect]
     Indication: ACUTE MYELOID LEUKAEMIA
     Dosage: DAILY DOSE:140MG-FREQ:DAILY
     Route: 042
  4. CYTARABINE [Suspect]
     Indication: ACUTE MYELOID LEUKAEMIA
     Dosage: DAILY DOSE:5700MG-FREQ:BD, EVERY 2ND DAY
     Route: 042
  5. PEGFILGRASTIM [Suspect]
     Indication: NEUTROPENIA
     Dosage: DAILY DOSE:6MG-FREQ:ONCE
     Route: 058
  6. BLINDED IDARUBICIN [Suspect]
     Indication: MUCOSAL INFLAMMATION
     Route: 042
  7. FILGRASTIM [Suspect]
     Indication: ACUTE MYELOID LEUKAEMIA
     Route: 058
  8. VANCOMYCIN HCL [Concomitant]
     Route: 042
     Dates: start: 20080526, end: 20080609
  9. NORETHINDRONE ACETATE [Concomitant]
     Route: 048
     Dates: start: 20080511, end: 20080609
  10. VALTREX [Concomitant]
     Route: 048
     Dates: start: 20080504, end: 20080609
  11. FLUCONAZOLE [Concomitant]
     Route: 048
     Dates: start: 20080508, end: 20080609
  12. ACETAMINOPHEN [Concomitant]
     Route: 048
     Dates: start: 20080516, end: 20080614
  13. PROMETHAZINE HCL [Concomitant]
     Route: 048
     Dates: start: 20080516, end: 20080612
  14. NILSTAT [Concomitant]
     Route: 048
  15. AZTREONAM [Concomitant]
     Route: 042
     Dates: start: 20080508, end: 20080610
  16. METRONIDAZOLE HCL [Concomitant]
     Route: 042
     Dates: start: 20080526, end: 20080610
  17. SLOW-K [Concomitant]
     Route: 048
     Dates: start: 20080610, end: 20080614
  18. VALACYCLOVIR HCL [Concomitant]
     Route: 048
     Dates: start: 20080609, end: 20080612
  19. NORETHINDRONE ACETATE [Concomitant]
     Route: 048
     Dates: start: 20080610, end: 20080613
  20. TIGECYCLINE [Concomitant]
     Route: 042
     Dates: start: 20080614, end: 20080615
  21. GENTAMICIN [Concomitant]
     Route: 042
     Dates: start: 20080525, end: 20080609

REACTIONS (1)
  - PSYCHOTIC DISORDER [None]
